FAERS Safety Report 6899131-6 (Version None)
Quarter: 2010Q3

REPORT INFORMATION
  Report Type: 
  Country: None (occurrence: None)
  Receive Date: 20100802
  Receipt Date: 20080116
  Transmission Date: 20110219
  Serious: No
  Sender: FDA-Public Use
  Company Number: US-PFIZER INC-2007090036

PATIENT
  Sex: Female
  Weight: 54.4 kg

DRUGS (2)
  1. LYRICA [Suspect]
     Indication: FIBROMYALGIA
     Route: 048
     Dates: start: 20071003
  2. PLAVIX [Concomitant]

REACTIONS (4)
  - BLOOD PRESSURE INCREASED [None]
  - PRESYNCOPE [None]
  - SENSATION OF HEAVINESS [None]
  - STRESS [None]
